FAERS Safety Report 9392344 (Version 8)
Quarter: 2018Q2

REPORT INFORMATION
  Report Type: Report from Study
  Country: CA (occurrence: CA)
  Receive Date: 20130710
  Receipt Date: 20180509
  Transmission Date: 20180711
  Serious: Yes (Hospitalization, Other)
  Sender: FDA-Public Use
  Company Number: CA-ROCHE-1246754

PATIENT
  Age: 60 Year
  Sex: Female
  Weight: 90.7 kg

DRUGS (15)
  1. RITUXAN [Suspect]
     Active Substance: RITUXIMAB
     Route: 042
     Dates: start: 20130110
  2. DIPHENHYDRAMINE HCL [Concomitant]
     Active Substance: DIPHENHYDRAMINE HYDROCHLORIDE
     Indication: PREMEDICATION
     Route: 048
     Dates: start: 20090630
  3. RITUXAN [Suspect]
     Active Substance: RITUXIMAB
     Route: 042
     Dates: start: 20171030
  4. METHYLPREDNISOLONE. [Concomitant]
     Active Substance: METHYLPREDNISOLONE
     Indication: PREMEDICATION
     Route: 042
     Dates: start: 20090630
  5. ASAPHEN [Concomitant]
     Active Substance: ASPIRIN
  6. VITAMIN B12 [Concomitant]
     Active Substance: CYANOCOBALAMIN
     Route: 065
  7. FUROSEMIDE. [Concomitant]
     Active Substance: FUROSEMIDE
     Route: 065
  8. ROSUVASTATIN. [Suspect]
     Active Substance: ROSUVASTATIN
     Indication: BLOOD CHOLESTEROL INCREASED
     Route: 048
     Dates: start: 2013, end: 20130717
  9. METFORMIN [Concomitant]
     Active Substance: METFORMIN HYDROCHLORIDE
     Route: 065
  10. AVAPRO [Concomitant]
     Active Substance: IRBESARTAN
     Route: 065
  11. RITUXAN [Suspect]
     Active Substance: RITUXIMAB
     Indication: RHEUMATOID ARTHRITIS
     Dosage: LAST INFUSION: 17/DEC/2014.
     Route: 042
     Dates: start: 20081211
  12. ACETAMINOPHEN. [Concomitant]
     Active Substance: ACETAMINOPHEN
     Indication: PREMEDICATION
     Route: 048
     Dates: start: 20090630
  13. CARBOCAL D [Concomitant]
     Active Substance: CALCIUM\VITAMIN D
  14. GLICLAZIDE [Concomitant]
     Active Substance: GLICLAZIDE
     Route: 065
  15. BISOPROLOL [Concomitant]
     Active Substance: BISOPROLOL
     Route: 065

REACTIONS (13)
  - C-reactive protein increased [Unknown]
  - Anxiety [Unknown]
  - Swelling [Unknown]
  - Blood cholesterol increased [Not Recovered/Not Resolved]
  - Influenza [Unknown]
  - Pneumonia [Unknown]
  - Hypertension [Unknown]
  - Rheumatoid arthritis [Unknown]
  - Joint swelling [Unknown]
  - Blood glucose increased [Not Recovered/Not Resolved]
  - Diabetes mellitus [Unknown]
  - Depression [Unknown]
  - Ear infection [Unknown]

NARRATIVE: CASE EVENT DATE: 2013
